FAERS Safety Report 9920250 (Version 2)
Quarter: 2014Q1

REPORT INFORMATION
  Report Type: Report from Study
  Country: US (occurrence: US)
  Receive Date: 20140224
  Receipt Date: 20140325
  Transmission Date: 20141002
  Serious: Yes (Hospitalization, Other)
  Sender: FDA-Public Use
  Company Number: US-ACTELION-A-US2014-95053

PATIENT
  Age: 56 Year
  Sex: Female

DRUGS (1)
  1. VELETRI [Suspect]
     Indication: PULMONARY ARTERIAL HYPERTENSION
     Dosage: 42 NG/KG, UNK
     Route: 042
     Dates: start: 20100614

REACTIONS (3)
  - Kidney infection [Unknown]
  - Device damage [Unknown]
  - Incision site erythema [Unknown]
